FAERS Safety Report 24267827 (Version 1)
Quarter: 2024Q3

REPORT INFORMATION
  Report Type: Spontaneous
  Country: JP (occurrence: JP)
  Receive Date: 20240830
  Receipt Date: 20240830
  Transmission Date: 20241017
  Serious: Yes (Other)
  Sender: BAXTER
  Company Number: JP-shionogi-202406459_UMX_P_1

PATIENT
  Sex: Female

DRUGS (3)
  1. MESNA [Suspect]
     Active Substance: MESNA
     Dosage: UNK, EVERY 1 DAY, (DOSAGE FORM: INJECTION)
     Route: 065
  2. CYCLOPHOSPHAMIDE [Suspect]
     Active Substance: CYCLOPHOSPHAMIDE
     Indication: Systemic lupus erythematosus
     Dosage: UNK
     Route: 065
  3. SODIUM CHLORIDE [Concomitant]
     Active Substance: SODIUM CHLORIDE
     Indication: Cystitis haemorrhagic
     Dosage: UNK
     Route: 041

REACTIONS (12)
  - Nephrotic syndrome [Unknown]
  - Dysuria [Unknown]
  - Generalised oedema [Unknown]
  - Decreased appetite [Unknown]
  - Ovarian atrophy [Unknown]
  - Menopausal symptoms [Unknown]
  - Feeding disorder [Unknown]
  - Amenorrhoea [Unknown]
  - Nausea [Unknown]
  - Hyperhidrosis [Unknown]
  - Dizziness [Unknown]
  - Asthenia [Unknown]
